FAERS Safety Report 9636589 (Version 1)
Quarter: 2013Q4

REPORT INFORMATION
  Report Type: Spontaneous
  Country: TR (occurrence: TR)
  Receive Date: 20131021
  Receipt Date: 20131021
  Transmission Date: 20140711
  Serious: Yes (Hospitalization, Other)
  Sender: FDA-Public Use
  Company Number: ALCN2013TR005268

PATIENT
  Age: 36 Year
  Sex: 0

DRUGS (1)
  1. ALCAINE [Suspect]
     Dosage: UNK
     Route: 047

REACTIONS (3)
  - Acanthamoeba keratitis [Recovering/Resolving]
  - Corneal epithelium defect [Recovering/Resolving]
  - Hypopyon [Recovering/Resolving]
